FAERS Safety Report 17544819 (Version 1)
Quarter: 2020Q1

REPORT INFORMATION
  Report Type: Spontaneous
  Country: CA (occurrence: CA)
  Receive Date: 20200316
  Receipt Date: 20200316
  Transmission Date: 20200409
  Serious: Yes (Other)
  Sender: FDA-Public Use
  Company Number: CA-TAKEDA-2020TUS013908

PATIENT

DRUGS (7)
  1. QUETIAPINE FUMARATE. [Concomitant]
     Active Substance: QUETIAPINE FUMARATE
     Indication: SLEEP DISORDER
     Dosage: UNK
     Route: 065
  2. ASACOL [Suspect]
     Active Substance: MESALAMINE
     Indication: PRODUCT USED FOR UNKNOWN INDICATION
     Dosage: UNK
     Route: 065
  3. HUMIRA [Suspect]
     Active Substance: ADALIMUMAB
     Indication: PRODUCT USED FOR UNKNOWN INDICATION
     Dosage: UNK
     Route: 065
  4. IMURAN [Suspect]
     Active Substance: AZATHIOPRINE
     Indication: PRODUCT USED FOR UNKNOWN INDICATION
     Dosage: UNK
     Route: 065
  5. ENTYVIO [Suspect]
     Active Substance: VEDOLIZUMAB
     Indication: PRODUCT USED FOR UNKNOWN INDICATION
     Dosage: 300 MILLIGRAM
     Route: 042
  6. ERGOCALCIFEROL. [Suspect]
     Active Substance: ERGOCALCIFEROL
     Indication: PRODUCT USED FOR UNKNOWN INDICATION
     Dosage: UNK
     Route: 065
  7. PREDNISONE. [Suspect]
     Active Substance: PREDNISONE
     Indication: PRODUCT USED FOR UNKNOWN INDICATION
     Dosage: UNK
     Route: 065

REACTIONS (21)
  - Appendicectomy [Unknown]
  - Asthma [Unknown]
  - Frequent bowel movements [Unknown]
  - Gastrointestinal lymphoma [Unknown]
  - Defaecation urgency [Unknown]
  - Malaise [Unknown]
  - Paraesthesia [Unknown]
  - Depressed mood [Unknown]
  - Mental disorder [Unknown]
  - C-reactive protein abnormal [Unknown]
  - Drug ineffective [Unknown]
  - Drug level increased [Unknown]
  - Tremor [Unknown]
  - Faeces soft [Unknown]
  - Gastrooesophageal reflux disease [Unknown]
  - Hernia [Unknown]
  - Stress [Unknown]
  - Abdominal pain [Unknown]
  - Diarrhoea haemorrhagic [Unknown]
  - Anxiety [Unknown]
  - Platelet count increased [Unknown]
